FAERS Safety Report 23338722 (Version 1)
Quarter: 2023Q4

REPORT INFORMATION
  Report Type: Spontaneous
  Country: US (occurrence: None)
  Receive Date: 20231225
  Receipt Date: 20231225
  Transmission Date: 20240110
  Serious: Yes (unspecified)
  Sender: FDA-Public Use
  Company Number: None

PATIENT
  Age: 31 Year
  Sex: Female
  Weight: 119.25 kg

DRUGS (5)
  1. XULANE [Suspect]
     Active Substance: ETHINYL ESTRADIOL\NORELGESTROMIN
     Indication: Contraception
     Dosage: OTHER QUANTITY : 1 PATCH(ES);?OTHER FREQUENCY : CHANGE ONCE A WEEK;?
     Route: 062
     Dates: start: 20230117, end: 20231224
  2. Lebatelol [Concomitant]
  3. VRAYLAR [Concomitant]
     Active Substance: CARIPRAZINE
  4. SERTRALINE [Concomitant]
     Active Substance: SERTRALINE HYDROCHLORIDE
  5. VITAMIN D [Concomitant]
     Active Substance: VITAMIN D NOS

REACTIONS (4)
  - Application site burn [None]
  - Application site scar [None]
  - Application site pain [None]
  - Application site pruritus [None]

NARRATIVE: CASE EVENT DATE: 20231111
